FAERS Safety Report 6771415-1 (Version None)
Quarter: 2010Q2

REPORT INFORMATION
  Report Type: 
  Country: None (occurrence: None)
  Receive Date: 20100616
  Receipt Date: 20100607
  Transmission Date: 20101027
  Serious: Yes (Disabling)
  Sender: FDA-Public Use
  Company Number: CA-ASTRAZENECA-2010SE27341

PATIENT
  Age: 61 Year
  Sex: Female

DRUGS (9)
  1. CRESTOR [Suspect]
     Route: 048
  2. ASPIRIN [Concomitant]
     Route: 048
  3. GEN-FAMOTIDINE [Concomitant]
     Route: 048
  4. LIPITOR [Concomitant]
     Route: 048
  5. NOVO VENLAFAXINE XR [Concomitant]
     Route: 048
  6. PLAVIX [Concomitant]
     Route: 048
  7. SINEMET CR [Concomitant]
     Route: 048
  8. TRAMADOL HCL [Concomitant]
     Route: 048
  9. TYLENOL W/ CODEINE NO. 3 [Concomitant]
     Route: 048

REACTIONS (8)
  - CONDITION AGGRAVATED [None]
  - JOINT LOCK [None]
  - JOINT SWELLING [None]
  - OEDEMA PERIPHERAL [None]
  - PAIN IN EXTREMITY [None]
  - SKIN TIGHTNESS [None]
  - TENDON DISORDER [None]
  - TENDON PAIN [None]
